FAERS Safety Report 7421059-3 (Version None)
Quarter: 2011Q2

REPORT INFORMATION
  Report Type: 
  Country: None (occurrence: None)
  Receive Date: 20110418
  Receipt Date: 20110411
  Transmission Date: 20111010
  Serious: Yes (Hospitalization)
  Sender: FDA-Public Use
  Company Number: US-TEVA-276132USA

PATIENT
  Sex: Male
  Weight: 69.916 kg

DRUGS (20)
  1. GRANISETRON HCL [Concomitant]
     Indication: NAUSEA
  2. CLINDAMYCIN [Concomitant]
     Indication: DERMATITIS ACNEIFORM
     Route: 061
     Dates: start: 20110207
  3. PREDNISONE [Concomitant]
     Indication: FATIGUE
     Dosage: 20 MILLIGRAM;
     Route: 048
     Dates: start: 20110330
  4. FLUOROURACIL [Suspect]
     Indication: HEAD AND NECK CANCER
     Route: 042
     Dates: start: 20110124, end: 20110323
  5. DOLASETRON MESYLATE [Concomitant]
     Indication: NAUSEA
     Route: 048
     Dates: start: 20110124
  6. GLUCOSE [Concomitant]
     Indication: NAUSEA
  7. MINOCYCLINE [Concomitant]
     Indication: RASH
     Route: 048
     Dates: start: 20110311
  8. LORAZEPAM [Concomitant]
  9. LANSOPRAZOLE [Concomitant]
  10. MINOCYCLINE [Concomitant]
     Indication: DERMATITIS ACNEIFORM
     Route: 048
     Dates: start: 20110214
  11. MACROGOL [Concomitant]
     Indication: CONSTIPATION
     Route: 048
     Dates: start: 20110221
  12. MAGNESIUM OXIDE [Concomitant]
     Indication: HYPOMAGNESAEMIA
     Dosage: 1200 MILLIGRAM;
     Route: 048
     Dates: start: 20110302
  13. GLUCOSE [Concomitant]
     Indication: FATIGUE
     Route: 042
     Dates: start: 20110302
  14. SODIUM CHLORIDE [Concomitant]
     Indication: ASTHENIA
  15. CISPLATIN [Suspect]
     Indication: HEAD AND NECK CANCER
     Route: 042
     Dates: start: 20110124, end: 20110323
  16. CETUXIMAB [Suspect]
     Indication: HEAD AND NECK CANCER
     Dosage: LOADING DOSE
     Route: 042
     Dates: start: 20110124, end: 20110330
  17. GRANISETRON HCL [Concomitant]
     Indication: FATIGUE
     Dates: start: 20110302
  18. SODIUM CHLORIDE [Concomitant]
     Indication: FATIGUE
     Route: 042
     Dates: start: 20110302
  19. PROMETHAZINE [Concomitant]
     Indication: NAUSEA
     Route: 048
  20. POTASSIUM CHLORIDE [Concomitant]
     Indication: HYPOKALAEMIA
     Route: 048
     Dates: start: 20110131

REACTIONS (1)
  - HYPOTENSION [None]
